FAERS Safety Report 11227498 (Version 2)
Quarter: 2015Q3

REPORT INFORMATION
  Report Type: Spontaneous
  Country: US (occurrence: US)
  Receive Date: 20150630
  Receipt Date: 20150828
  Transmission Date: 20151125
  Serious: Yes (Hospitalization, Other)
  Sender: FDA-Public Use
  Company Number: US-PFIZER INC-2015211441

PATIENT
  Age: 53 Year
  Sex: Female

DRUGS (2)
  1. DUAVEE [Suspect]
     Active Substance: BAZEDOXIFENE ACETATE\ESTROGENS, CONJUGATED
     Indication: MENOPAUSAL SYMPTOMS
     Dosage: UNK UNK, 1X/DAY
     Route: 048
     Dates: start: 20150414, end: 20150609
  2. ESTRACE [Concomitant]
     Active Substance: ESTRADIOL
     Dosage: UNK, (SMALL PEA SIZED AMOUNT M/W/F NIGHT)

REACTIONS (1)
  - Deep vein thrombosis [Recovering/Resolving]
